FAERS Safety Report 9733481 (Version 1)
Quarter: 2013Q4

REPORT INFORMATION
  Report Type: Spontaneous
  Country: US (occurrence: US)
  Receive Date: 20131205
  Receipt Date: 20131205
  Transmission Date: 20140711
  Serious: No
  Sender: FDA-Public Use
  Company Number: US-JNJFOC-20131114653

PATIENT
  Age: 68 Year
  Sex: Female
  Weight: 56.7 kg

DRUGS (4)
  1. DURAGESIC [Suspect]
     Indication: SPINAL FUSION SURGERY
     Route: 062
     Dates: start: 201310, end: 201311
  2. DURAGESIC [Suspect]
     Indication: SPINAL FUSION SURGERY
     Route: 062
     Dates: start: 20131016, end: 201310
  3. DURAGESIC [Suspect]
     Indication: SPINAL FUSION SURGERY
     Route: 062
     Dates: end: 2010
  4. DURAGESIC [Suspect]
     Indication: SPINAL FUSION SURGERY
     Route: 062
     Dates: start: 2005

REACTIONS (4)
  - Inadequate analgesia [Recovered/Resolved]
  - Inadequate analgesia [Recovered/Resolved]
  - Expired drug administered [Recovered/Resolved]
  - Inappropriate schedule of drug administration [Unknown]
